FAERS Safety Report 4467364-4 (Version None)
Quarter: 2004Q4

REPORT INFORMATION
  Report Type: 
  Country: None (occurrence: None)
  Receive Date: 20041006
  Receipt Date: 20040929
  Transmission Date: 20050328
  Serious: Yes (Hospitalization)
  Sender: FDA-Public Use
  Company Number: PHEH2004US10556

PATIENT
  Age: 74 Year
  Sex: Female

DRUGS (5)
  1. EXELON [Suspect]
     Indication: DEMENTIA ALZHEIMER'S TYPE
     Dosage: 1.5 MG, BID
     Route: 048
  2. EXELON [Suspect]
     Dosage: 6 MG, BID
     Route: 048
  3. EXELON [Suspect]
     Dosage: 3 MG, BID
     Route: 048
  4. FLUOXETINE [Concomitant]
     Dosage: 10 MG, UNK
  5. OXYBUTYNIN [Concomitant]
     Dosage: 10 MG, UNK

REACTIONS (3)
  - ABDOMINAL PAIN [None]
  - MEDICATION ERROR [None]
  - NAUSEA [None]
